FAERS Safety Report 16410534 (Version 6)
Quarter: 2021Q2

REPORT INFORMATION
  Report Type: Report from Study
  Country: LB (occurrence: LB)
  Receive Date: 20190610
  Receipt Date: 20210510
  Transmission Date: 20210716
  Serious: Yes (Hospitalization, Other)
  Sender: FDA-Public Use
  Company Number: LB-SEATTLE GENETICS-2019SGN01987

PATIENT
  Sex: Female

DRUGS (2)
  1. BRENTUXIMAB VEDOTIN [Suspect]
     Active Substance: BRENTUXIMAB VEDOTIN
     Indication: HODGKIN^S DISEASE
     Dosage: 120 MILLIGRAM
     Route: 042
     Dates: start: 20181026, end: 20190706
  2. BRENTUXIMAB VEDOTIN [Suspect]
     Active Substance: BRENTUXIMAB VEDOTIN
     Dosage: 180 MILLIGRAM
     Route: 042
     Dates: start: 20200430, end: 20210227

REACTIONS (4)
  - COVID-19 [Unknown]
  - Swelling [Unknown]
  - Peripheral swelling [Unknown]
  - Pulmonary fibrosis [Not Recovered/Not Resolved]
